FAERS Safety Report 8025939-X (Version None)
Quarter: 2012Q1

REPORT INFORMATION
  Report Type: 
  Country: None (occurrence: None)
  Receive Date: 20120105
  Receipt Date: 20110929
  Transmission Date: 20120608
  Serious: No
  Sender: FDA-Public Use
  Company Number: US-ABBOTT-11P-163-0859630-00

PATIENT
  Sex: Female

DRUGS (2)
  1. SYNTHROID [Suspect]
     Indication: HYPOTHYROIDISM
     Dosage: 125 MCG DAILY
     Dates: start: 20110701, end: 20110901
  2. SYNTHROID [Suspect]
     Dosage: 75 MCG DAILY
     Dates: start: 20110901, end: 20110901

REACTIONS (3)
  - DYSPNOEA [None]
  - MALAISE [None]
  - WEIGHT INCREASED [None]
